FAERS Safety Report 10618896 (Version 1)
Quarter: 2014Q4

REPORT INFORMATION
  Report Type: Spontaneous
  Country: KR (occurrence: None)
  Receive Date: 20141126
  Receipt Date: 20141126
  Transmission Date: 20150529
  Serious: Yes (Death, Other)
  Sender: FDA-Public Use
  Company Number: FK201405509

PATIENT
  Age: 75 Year
  Sex: Female

DRUGS (4)
  1. ROCURONIUM (MANUFACTURER UNKNOWN) (ROCURONIUM) (ROCURONIUM) [Suspect]
     Active Substance: ROCURONIUM BROMIDE
     Indication: INDUCTION OF ANAESTHESIA
  2. DESFLURANE. [Suspect]
     Active Substance: DESFLURANE
     Indication: MAINTENANCE OF ANAESTHESIA
  3. THIOPENTAL [Suspect]
     Active Substance: THIOPENTAL
     Indication: INDUCTION OF ANAESTHESIA
  4. REMIFENTANIL [Suspect]
     Active Substance: REMIFENTANIL
     Indication: INDUCTION OF ANAESTHESIA

REACTIONS (16)
  - Delayed recovery from anaesthesia [None]
  - Hyponatraemia [None]
  - Autonomic nervous system imbalance [None]
  - Wernicke^s encephalopathy [None]
  - Pneumonia [None]
  - Labile blood pressure [None]
  - Porphyria acute [None]
  - Electroencephalogram abnormal [None]
  - Neuropathy peripheral [None]
  - Lung disorder [None]
  - Guillain-Barre syndrome [None]
  - Tachycardia [None]
  - Cardiac disorder [None]
  - Respiratory muscle weakness [None]
  - Respiratory failure [None]
  - General physical health deterioration [None]
